FAERS Safety Report 16196576 (Version 5)
Quarter: 2020Q1

REPORT INFORMATION
  Report Type: Report from Study
  Country: JP (occurrence: JP)
  Receive Date: 20190415
  Receipt Date: 20200117
  Transmission Date: 20200409
  Serious: Yes (Hospitalization, Other)
  Sender: FDA-Public Use
  Company Number: PHJP2019JP004140

PATIENT
  Age: 73 Year
  Sex: Female

DRUGS (33)
  1. REVOLADE TAB [Suspect]
     Active Substance: ELTROMBOPAG
     Dosage: 25 MG, UNK
     Route: 048
     Dates: start: 20190131, end: 20190318
  2. PROGRAF [Concomitant]
     Active Substance: TACROLIMUS
     Dosage: 2 MG, UNK
     Route: 048
     Dates: start: 20190219, end: 20190311
  3. DEXAMETASON [Concomitant]
     Active Substance: DEXAMETHASONE
     Dosage: 1.5 MG
     Route: 048
     Dates: start: 20190613, end: 20190704
  4. CONCENTRATED RED CELLS [Concomitant]
     Active Substance: HUMAN RED BLOOD CELL
     Dosage: 400 ML, UNK
     Route: 042
     Dates: start: 20181026, end: 20181026
  5. CONCENTRATED RED CELLS [Concomitant]
     Active Substance: HUMAN RED BLOOD CELL
     Dosage: 400 ML, UNK
     Route: 042
     Dates: start: 20190312, end: 20190312
  6. REVOLADE TAB [Suspect]
     Active Substance: ELTROMBOPAG
     Dosage: 50 MG, UNK
     Route: 048
     Dates: start: 20190125, end: 20190130
  7. LANSOPRAZOLE. [Concomitant]
     Active Substance: LANSOPRAZOLE
     Indication: PROPHYLAXIS AGAINST GASTROINTESTINAL ULCER
     Dosage: 15 MG, UNK
     Route: 048
     Dates: start: 20181022, end: 20190220
  8. TAKECAB [Concomitant]
     Active Substance: VONOPRAZAN FUMURATE
     Indication: PRODUCT USED FOR UNKNOWN INDICATION
     Dosage: 10 MG, UNK
     Route: 048
     Dates: start: 20190221
  9. REVOLADE TAB [Suspect]
     Active Substance: ELTROMBOPAG
     Dosage: 50 MG, UNK
     Route: 048
     Dates: start: 20181109, end: 20181121
  10. REVOLADE TAB [Suspect]
     Active Substance: ELTROMBOPAG
     Dosage: 100 MG, UNK
     Route: 048
     Dates: start: 20181129, end: 20190124
  11. DEXAMETASON [Concomitant]
     Active Substance: DEXAMETHASONE
     Dosage: 2 MG
     Route: 048
     Dates: start: 20190126, end: 20190612
  12. CONCENTRATED RED CELLS [Concomitant]
     Active Substance: HUMAN RED BLOOD CELL
     Dosage: 400 ML, UNK
     Route: 042
     Dates: start: 20181114, end: 20181114
  13. REVOLADE TAB [Suspect]
     Active Substance: ELTROMBOPAG
     Dosage: 75 MG, UNK
     Route: 048
     Dates: start: 20181122, end: 20181128
  14. REVOLADE TAB [Suspect]
     Active Substance: ELTROMBOPAG
     Dosage: 12.5 MG, UNK
     Route: 048
     Dates: start: 20190319, end: 20190327
  15. PROGRAF [Concomitant]
     Active Substance: TACROLIMUS
     Dosage: 2 MG, UNK
     Route: 048
     Dates: start: 20190117, end: 20190123
  16. DEXAMETASON [Concomitant]
     Active Substance: DEXAMETHASONE
     Indication: APLASTIC ANAEMIA
     Dosage: 1 MG
     Route: 048
     Dates: start: 20181022, end: 20181122
  17. DEXAMETASON [Concomitant]
     Active Substance: DEXAMETHASONE
     Dosage: 1 MG
     Route: 048
     Dates: start: 20181227, end: 20190110
  18. CONCENTRATED RED CELLS [Concomitant]
     Active Substance: HUMAN RED BLOOD CELL
     Dosage: 400 ML, UNK
     Route: 042
     Dates: start: 20181206, end: 20181206
  19. CONCENTRATED RED CELLS [Concomitant]
     Active Substance: HUMAN RED BLOOD CELL
     Dosage: 400 ML, UNK
     Route: 042
     Dates: start: 20190125, end: 20190125
  20. REVOLADE TAB [Suspect]
     Active Substance: ELTROMBOPAG
     Dosage: 25 MG, UNK
     Route: 048
     Dates: start: 20190425, end: 20191020
  21. PROGRAF [Concomitant]
     Active Substance: TACROLIMUS
     Dosage: 3 MG, UNK
     Route: 048
     Dates: start: 20190124, end: 20190218
  22. DEXAMETASON [Concomitant]
     Active Substance: DEXAMETHASONE
     Dosage: 0.5 MG
     Route: 048
     Dates: start: 20190111, end: 20190125
  23. CONCENTRATED RED CELLS [Concomitant]
     Active Substance: HUMAN RED BLOOD CELL
     Dosage: 400 ML, UNK
     Route: 042
     Dates: start: 20190110, end: 20190110
  24. CONCENTRATED RED CELLS [Concomitant]
     Active Substance: HUMAN RED BLOOD CELL
     Dosage: 400 ML, UNK
     Route: 042
     Dates: start: 20190326
  25. PROGRAF [Concomitant]
     Active Substance: TACROLIMUS
     Dosage: 1 MG, UNK
     Route: 048
     Dates: start: 20190312, end: 20190313
  26. DEXAMETASON [Concomitant]
     Active Substance: DEXAMETHASONE
     Dosage: 0.5 MG
     Route: 048
     Dates: start: 20181122, end: 20181226
  27. CONCENTRATED RED CELLS [Concomitant]
     Active Substance: HUMAN RED BLOOD CELL
     Dosage: 400 ML, UNK
     Route: 042
     Dates: start: 20181227, end: 20181227
  28. REVOLADE TAB [Suspect]
     Active Substance: ELTROMBOPAG
     Indication: APLASTIC ANAEMIA
     Dosage: 25 MG, UNK
     Route: 048
     Dates: start: 20181022, end: 20181108
  29. PROGRAF [Concomitant]
     Active Substance: TACROLIMUS
     Indication: APLASTIC ANAEMIA
     Dosage: 0.5 MG, UNK
     Route: 048
     Dates: start: 20190111, end: 20190116
  30. DEXAMETASON [Concomitant]
     Active Substance: DEXAMETHASONE
     Dosage: 1 MG
     Route: 048
     Dates: start: 20190705
  31. CONCENTRATED RED CELLS [Concomitant]
     Active Substance: HUMAN RED BLOOD CELL
     Indication: APLASTIC ANAEMIA
     Dosage: 400 ML, UNK
     Route: 042
     Dates: start: 20180908, end: 20180908
  32. CONCENTRATED RED CELLS [Concomitant]
     Active Substance: HUMAN RED BLOOD CELL
     Dosage: 400 ML, UNK
     Route: 042
     Dates: start: 20180925, end: 20180925
  33. CONCENTRATED RED CELLS [Concomitant]
     Active Substance: HUMAN RED BLOOD CELL
     Dosage: 400 ML, UNK
     Route: 042
     Dates: start: 20190219, end: 20190219

REACTIONS (6)
  - Bone marrow failure [Recovered/Resolved]
  - Neutrophil count decreased [Recovered/Resolved]
  - Gastric ulcer [Recovered/Resolved]
  - Drug ineffective [Recovered/Resolved]
  - Haemorrhagic diathesis [Recovered/Resolved]
  - Constipation [Recovering/Resolving]

NARRATIVE: CASE EVENT DATE: 20181127
